FAERS Safety Report 15981960 (Version 3)
Quarter: 2019Q2

REPORT INFORMATION
  Report Type: Spontaneous
  Country: SE (occurrence: SE)
  Receive Date: 20190219
  Receipt Date: 20190613
  Transmission Date: 20190711
  Serious: Yes (Life-Threatening, Other)
  Sender: FDA-Public Use
  Company Number: SE-GLAXOSMITHKLINE-SE2019GSK028676

PATIENT
  Age: 59 Year
  Sex: Male
  Weight: 113 kg

DRUGS (4)
  1. IMIGRAN [Suspect]
     Active Substance: SUMATRIPTAN SUCCINATE
     Dosage: 12 MG/ML, UNK
     Route: 042
     Dates: start: 20180709, end: 20180709
  2. IMIGRAN [Suspect]
     Active Substance: SUMATRIPTAN SUCCINATE
     Indication: PRODUCT USED FOR UNKNOWN INDICATION
     Dosage: UNK
     Route: 042
  3. ALVEDON [Concomitant]
     Active Substance: ACETAMINOPHEN
     Indication: HEADACHE
     Dosage: UNK
  4. IPREN [Concomitant]
     Active Substance: IBUPROFEN
     Indication: HEADACHE
     Dosage: UNK

REACTIONS (3)
  - Angina pectoris [Recovered/Resolved]
  - Discomfort [Unknown]
  - Anxiety [Unknown]

NARRATIVE: CASE EVENT DATE: 20180709
